FAERS Safety Report 8912553 (Version 3)
Quarter: 2013Q1

REPORT INFORMATION
  Report Type: Report from Study
  Country: US (occurrence: US)
  Receive Date: 20121115
  Receipt Date: 20130228
  Transmission Date: 20140127
  Serious: Yes (Hospitalization, Disabling, Other)
  Sender: FDA-Public Use
  Company Number: US-ASTRAZENECA-2012SE84877

PATIENT
  Age: 47 Year
  Sex: Female

DRUGS (6)
  1. SYMBICORT PMDI [Suspect]
     Dosage: 160/4.5 MCG, UNKNOWN FREQUENCY
     Route: 055
  2. ZESTORETIC [Suspect]
     Dosage: 10/12.5, DAILY
     Route: 048
  3. LORATADINE [Concomitant]
  4. PRAVASTATIN [Concomitant]
  5. METFORMIN [Concomitant]
  6. CITALOPRAM [Concomitant]

REACTIONS (6)
  - Hypertension [Unknown]
  - Blood glucose increased [Unknown]
  - Facial paresis [Unknown]
  - Dysarthria [Unknown]
  - Hemiparesis [Unknown]
  - Cerebral infarction [Unknown]
